FAERS Safety Report 8863174 (Version 1)
Quarter: 2012Q4

REPORT INFORMATION
  Report Type: 
  Country: US (occurrence: US)
  Receive Date: 20121026
  Receipt Date: 20121026
  Transmission Date: 20130627
  Serious: No
  Sender: FDA-Public Use
  Company Number: US-ASTRAZENECA-2011SE66067

PATIENT
  Age: 80 Year
  Sex: Male
  Weight: 65.8 kg

DRUGS (3)
  1. CRESTOR [Suspect]
     Route: 048
  2. SIMVASTATIN [Concomitant]
  3. UNSPECIFIED [Concomitant]

REACTIONS (1)
  - Alopecia [Unknown]
